FAERS Safety Report 25634038 (Version 1)
Quarter: 2025Q3

REPORT INFORMATION
  Report Type: Spontaneous
  Country: US (occurrence: US)
  Receive Date: 20250801
  Receipt Date: 20250801
  Transmission Date: 20251021
  Serious: No
  Sender: SANOFI AVENTIS
  Company Number: US-SANOFI-02607387

PATIENT
  Age: 61 Year
  Sex: Female

DRUGS (4)
  1. LANTUS [Suspect]
     Active Substance: INSULIN GLARGINE
     Indication: Type 2 diabetes mellitus
     Route: 065
  2. LANTUS [Suspect]
     Active Substance: INSULIN GLARGINE
     Dosage: 30 IU, BID
     Route: 065
     Dates: start: 2025
  3. OZEMPIC [Concomitant]
     Active Substance: SEMAGLUTIDE
  4. LEVEMIR [Concomitant]
     Active Substance: INSULIN DETEMIR

REACTIONS (4)
  - Visual impairment [Unknown]
  - Blood glucose abnormal [Unknown]
  - Drug ineffective [Unknown]
  - Off label use [Unknown]

NARRATIVE: CASE EVENT DATE: 20230924
